FAERS Safety Report 23171957 (Version 1)
Quarter: 2023Q4

REPORT INFORMATION
  Report Type: Spontaneous
  Country: ES (occurrence: ES)
  Receive Date: 20231110
  Receipt Date: 20231110
  Transmission Date: 20240110
  Serious: Yes (Death)
  Sender: FDA-Public Use
  Company Number: None

PATIENT
  Age: 32 Year
  Sex: Male

DRUGS (3)
  1. OLANZAPINE [Interacting]
     Active Substance: OLANZAPINE
     Indication: Psychotic disorder
     Dosage: 20 MILLIGRAM DAILY; 1 TABLET EVERY 12 HOURS, 28 TABLETS, EFG
     Dates: start: 20230516
  2. CLOZAPINE [Interacting]
     Active Substance: CLOZAPINE
     Indication: Therapy change
     Dosage: 12.5 MILLIGRAM DAILY; 12.5 MG EVERY 24 HOURS, EFG, 40 TABLETS
     Dates: start: 20230919
  3. CLONAZEPAM NEURAXPHARM [Concomitant]
     Indication: Drug abuse
     Dosage: 6 MILLIGRAM DAILY; 2 TABLETS EVERY 8 HOURS, 60 TABLETS
     Dates: start: 20230216

REACTIONS (2)
  - Sudden death [Fatal]
  - Drug interaction [Unknown]

NARRATIVE: CASE EVENT DATE: 20230921
